FAERS Safety Report 6788479-1 (Version None)
Quarter: 2010Q2

REPORT INFORMATION
  Report Type: 
  Country: None (occurrence: None)
  Receive Date: 20100623
  Receipt Date: 20080320
  Transmission Date: 20101027
  Serious: No
  Sender: FDA-Public Use
  Company Number: US-PFIZER INC-2008026236

PATIENT
  Sex: Female

DRUGS (10)
  1. AROMASIN [Suspect]
     Indication: BREAST CANCER
     Dates: start: 20020101
  2. OSCAL [Concomitant]
  3. VALSARTAN [Concomitant]
  4. ACETYLSALICYLIC ACID [Concomitant]
  5. ACTONEL [Concomitant]
  6. NEXIUM [Concomitant]
  7. VITAMIN B-12 [Concomitant]
  8. PRAVASTATIN [Concomitant]
  9. TYLENOL [Concomitant]
  10. TAMOXIFEN [Concomitant]

REACTIONS (1)
  - HYPERTRICHOSIS [None]
